FAERS Safety Report 20048374 (Version 4)
Quarter: 2022Q2

REPORT INFORMATION
  Report Type: Spontaneous
  Country: US (occurrence: US)
  Receive Date: 20211109
  Receipt Date: 20220520
  Transmission Date: 20220721
  Serious: No
  Sender: FDA-Public Use
  Company Number: US-SA-SAC20211108000755

PATIENT
  Sex: Female

DRUGS (9)
  1. KEVZARA [Suspect]
     Active Substance: SARILUMAB
     Indication: Osteoarthritis
     Dosage: 200 MG, QOW
     Route: 058
  2. KEVZARA [Suspect]
     Active Substance: SARILUMAB
     Indication: Rheumatoid arthritis
  3. VALTREX [Concomitant]
     Active Substance: VALACYCLOVIR HYDROCHLORIDE
     Dosage: UNK
  4. VALTREX [Concomitant]
     Active Substance: VALACYCLOVIR HYDROCHLORIDE
  5. ZYRTEC [Concomitant]
     Active Substance: CETIRIZINE HYDROCHLORIDE
     Dosage: UNK
  6. ZYRTEC [Concomitant]
     Active Substance: CETIRIZINE HYDROCHLORIDE
  7. CELEBREX [Concomitant]
     Active Substance: CELECOXIB
     Indication: Osteoarthritis
     Dosage: UNK
  8. CELEBREX [Concomitant]
     Active Substance: CELECOXIB
  9. CYMBALTA [Concomitant]
     Active Substance: DULOXETINE HYDROCHLORIDE
     Dosage: UNK

REACTIONS (10)
  - Headache [Unknown]
  - Head discomfort [Unknown]
  - Dyspnoea [Unknown]
  - Sinus pain [Unknown]
  - Chest discomfort [Unknown]
  - Sleep disorder [Unknown]
  - Toothache [Unknown]
  - Respiratory tract congestion [Unknown]
  - Migraine [Not Recovered/Not Resolved]
  - Product use in unapproved indication [Unknown]
